FAERS Safety Report 7228264-X (Version None)
Quarter: 2011Q1

REPORT INFORMATION
  Report Type: 
  Country: None (occurrence: None)
  Receive Date: 20110114
  Receipt Date: 20110110
  Transmission Date: 20110831
  Serious: Yes (Hospitalization, Other)
  Sender: FDA-Public Use
  Company Number: US-PFIZER INC-2011006758

PATIENT
  Age: 65 Year
  Sex: Female

DRUGS (5)
  1. TAMOXIFEN CITRATE [Interacting]
  2. CYMBALTA [Interacting]
  3. FEMARA [Interacting]
  4. ZOLOFT [Suspect]
  5. LEXAPRO [Suspect]

REACTIONS (8)
  - ALCOHOL USE [None]
  - DRUG INEFFECTIVE [None]
  - BIPOLAR DISORDER [None]
  - THYROID NEOPLASM [None]
  - DRUG INTERACTION [None]
  - ENDOMETRIAL HYPERTROPHY [None]
  - DEPRESSED MOOD [None]
  - BREAST CANCER [None]
